FAERS Safety Report 13240041 (Version 2)
Quarter: 2017Q1

REPORT INFORMATION
  Report Type: Spontaneous
  Country: US (occurrence: US)
  Receive Date: 20170216
  Receipt Date: 20170307
  Transmission Date: 20170428
  Serious: No
  Sender: FDA-Public Use
  Company Number: US-GLAXOSMITHKLINE-US2017021370

PATIENT
  Age: 69 Year
  Sex: Male

DRUGS (1)
  1. TRANSDERM SCOP [Suspect]
     Active Substance: SCOPOLAMINE
     Indication: MOTION SICKNESS
     Dosage: UNK
     Dates: start: 201701, end: 201701

REACTIONS (3)
  - Application site pruritus [Recovered/Resolved]
  - Application site erythema [Unknown]
  - Application site scab [Not Recovered/Not Resolved]
